FAERS Safety Report 7278503-4 (Version None)
Quarter: 2011Q1

REPORT INFORMATION
  Report Type: 
  Country: None (occurrence: None)
  Receive Date: 20110207
  Receipt Date: 20110127
  Transmission Date: 20110831
  Serious: Yes (Hospitalization)
  Sender: FDA-Public Use
  Company Number: JP-JNJFOC-20100706470

PATIENT
  Age: 68 Year
  Sex: Female
  Weight: 43 kg

DRUGS (18)
  1. REMICADE [Suspect]
     Route: 042
  2. METHOTREXATE [Concomitant]
     Indication: RHEUMATOID ARTHRITIS
     Route: 048
  3. CYTOTEC [Concomitant]
     Route: 048
  4. REMICADE [Suspect]
     Route: 042
  5. FOLIAMIN [Concomitant]
     Indication: PROPHYLAXIS
     Route: 048
  6. EVISTA [Concomitant]
     Route: 048
  7. BAKTAR [Concomitant]
     Indication: PROPHYLAXIS
  8. REMICADE [Suspect]
     Route: 042
  9. FAMOTIDINE [Concomitant]
     Route: 048
  10. PREDNISOLONE [Concomitant]
     Route: 048
  11. NEOISCOTIN [Concomitant]
     Indication: ANTIBIOTIC PROPHYLAXIS
     Route: 048
  12. REMICADE [Suspect]
     Route: 042
  13. PYRIDOXAL PHOSPHATE [Concomitant]
     Indication: PROPHYLAXIS
     Route: 048
  14. REMICADE [Suspect]
     Indication: RHEUMATOID ARTHRITIS
     Route: 042
  15. DIBASIC POTASSIUM PHOSPHATE INORGANIC SALTS COMBINED DRUG [Concomitant]
     Route: 031
  16. CALONAL [Concomitant]
     Indication: PROPHYLAXIS
     Route: 048
  17. AMOBAN [Concomitant]
     Route: 048
  18. ALLEGRA [Concomitant]
     Indication: PROPHYLAXIS
     Route: 048

REACTIONS (1)
  - SYSTEMIC LUPUS ERYTHEMATOSUS RASH [None]
